FAERS Safety Report 19313570 (Version 1)
Quarter: 2021Q2

REPORT INFORMATION
  Report Type: Spontaneous
  Country: CN (occurrence: CN)
  Receive Date: 20210527
  Receipt Date: 20210527
  Transmission Date: 20210717
  Serious: Yes (Other)
  Sender: FDA-Public Use
  Company Number: CN-ROCHE-2834905

PATIENT
  Age: 43 Year
  Sex: Male

DRUGS (13)
  1. RALTITREXED [Concomitant]
     Active Substance: RALTITREXED
     Indication: ADENOCARCINOMA OF COLON
     Dosage: 8 CYCLES
     Dates: start: 202008
  2. RALTITREXED [Concomitant]
     Active Substance: RALTITREXED
     Dosage: MAINTENANCE THERAPY FOR 1 YEAR
     Dates: start: 202101
  3. 5?FLUOROURACIL [Suspect]
     Active Substance: FLUOROURACIL
     Indication: ADENOCARCINOMA OF COLON
     Dosage: 3 CYCLES
     Route: 065
     Dates: start: 202005
  4. OXALIPLATIN. [Concomitant]
     Active Substance: OXALIPLATIN
     Indication: ADENOCARCINOMA OF COLON
     Dosage: 3 CYCLES
     Dates: start: 202005
  5. CALCIUM FOLINATE [Concomitant]
     Active Substance: LEUCOVORIN CALCIUM
     Dosage: 3 CYCLES
     Dates: start: 202006
  6. AVASTIN [Suspect]
     Active Substance: BEVACIZUMAB
     Dosage: 3 CYCLES
     Route: 065
     Dates: start: 202006
  7. AVASTIN [Suspect]
     Active Substance: BEVACIZUMAB
     Dosage: MAINTENANCE THERAPY FOR 1 YEAR
     Route: 065
     Dates: start: 202101
  8. AVASTIN [Suspect]
     Active Substance: BEVACIZUMAB
     Indication: ADENOCARCINOMA OF COLON
     Dosage: 3 CYCLES
     Route: 065
     Dates: start: 202005
  9. AVASTIN [Suspect]
     Active Substance: BEVACIZUMAB
     Dosage: 8 CYCLES
     Route: 065
     Dates: start: 202008
  10. IRINOTECAN [Concomitant]
     Active Substance: IRINOTECAN
     Indication: ADENOCARCINOMA OF COLON
     Dosage: 3 CYCLES
     Dates: start: 202006
  11. IRINOTECAN [Concomitant]
     Active Substance: IRINOTECAN
     Dosage: 8 CYCLES
     Dates: start: 202008
  12. 5?FLUOROURACIL [Suspect]
     Active Substance: FLUOROURACIL
     Dosage: 3 CYCLES
     Route: 065
     Dates: start: 202006
  13. CALCIUM FOLINATE [Concomitant]
     Active Substance: LEUCOVORIN CALCIUM
     Indication: ADENOCARCINOMA OF COLON
     Dosage: 3 CYCLES
     Dates: start: 202005

REACTIONS (6)
  - Decreased appetite [Unknown]
  - Vomiting [Unknown]
  - Nausea [Unknown]
  - Asthenia [Unknown]
  - Myelosuppression [Unknown]
  - Diarrhoea [Unknown]
